FAERS Safety Report 7622449-6 (Version None)
Quarter: 2011Q3

REPORT INFORMATION
  Report Type: 
  Country: None (occurrence: None)
  Receive Date: 20110711
  Receipt Date: 20110624
  Transmission Date: 20111222
  Serious: Yes (Other)
  Sender: FDA-Public Use
  Company Number: 2011MA007156

PATIENT
  Age: 84 Year
  Sex: Female

DRUGS (2)
  1. TRAMADOL HCL [Concomitant]
  2. FEVERALL [Suspect]
     Indication: PAIN
     Dosage: 1000 MG

REACTIONS (11)
  - METABOLIC ACIDOSIS [None]
  - ANION GAP INCREASED [None]
  - DECREASED APPETITE [None]
  - HAEMATOMA [None]
  - OEDEMA PERIPHERAL [None]
  - RESPIRATORY DISORDER [None]
  - TACHYPNOEA [None]
  - HYPERGLYCAEMIA [None]
  - URINE KETONE BODY PRESENT [None]
  - DIABETIC KETOACIDOSIS [None]
  - FATIGUE [None]
